FAERS Safety Report 5042447-9 (Version None)
Quarter: 2006Q2

REPORT INFORMATION
  Report Type: 
  Country: None (occurrence: None)
  Receive Date: 20060627
  Receipt Date: 20060614
  Transmission Date: 20061013
  Serious: Yes (Hospitalization)
  Sender: FDA-Public Use
  Company Number: 2006-140077-NL

PATIENT
  Age: 72 Year
  Sex: Male

DRUGS (8)
  1. MIRTAZAPINE [Suspect]
     Indication: DEPRESSION
     Dosage: 15 MG QD
     Dates: end: 20050628
  2. ADVAIR DISKUS 100/50 [Concomitant]
  3. BISOPROLOL FUMARATE [Concomitant]
  4. LASIX [Concomitant]
  5. DOMPERIDONE [Concomitant]
  6. LORAZEPAM [Concomitant]
  7. LACTULOSE [Concomitant]
  8. PANTOPRAZOLE SODIUM [Concomitant]

REACTIONS (1)
  - HEPATITIS ACUTE [None]
